FAERS Safety Report 7216333-X (Version None)
Quarter: 2011Q1

REPORT INFORMATION
  Report Type: 
  Country: None (occurrence: None)
  Receive Date: 20110107
  Receipt Date: 20110105
  Transmission Date: 20110831
  Serious: Yes (Death, Hospitalization)
  Sender: FDA-Public Use
  Company Number: GR-JNJFOC-20100209476

PATIENT
  Sex: Male

DRUGS (1)
  1. RISPERDAL CONSTA [Suspect]
     Indication: SCHIZOPHRENIA
     Route: 030
     Dates: start: 20100212, end: 20100604

REACTIONS (6)
  - PRODUCTIVE COUGH [None]
  - DECREASED APPETITE [None]
  - PYREXIA [None]
  - DEATH [None]
  - SOMNOLENCE [None]
  - EATING DISORDER [None]
